FAERS Safety Report 8416614-8 (Version None)
Quarter: 2012Q2

REPORT INFORMATION
  Report Type: 
  Country: None (occurrence: None)
  Receive Date: 20120606
  Receipt Date: 20120531
  Transmission Date: 20120825
  Serious: No
  Sender: FDA-Public Use
  Company Number: US-BAYER-2012-052766

PATIENT
  Age: 47 Year
  Sex: Female
  Weight: 129 kg

DRUGS (1)
  1. NAPROXEN (ALEVE) [Suspect]
     Indication: BACK PAIN
     Dosage: 1 DF, QD, BOTTLE COUNT 20S
     Route: 048
     Dates: start: 20120519, end: 20120524

REACTIONS (8)
  - PAIN [None]
  - DYSGEUSIA [None]
  - FEELING COLD [None]
  - HYPOAESTHESIA [None]
  - HYPOAESTHESIA ORAL [None]
  - TEMPERATURE INTOLERANCE [None]
  - PARAESTHESIA [None]
  - PARAESTHESIA ORAL [None]
